FAERS Safety Report 6180491-9 (Version None)
Quarter: 2009Q2

REPORT INFORMATION
  Report Type: 
  Country: None (occurrence: None)
  Receive Date: 20090504
  Receipt Date: 20090504
  Transmission Date: 20091009
  Serious: No
  Sender: FDA-Public Use
  Company Number: None

PATIENT
  Age: 37 Year
  Sex: Female
  Weight: 58.9676 kg

DRUGS (4)
  1. LEVAQUIN [Suspect]
     Indication: SINUSITIS
     Dosage: 500MG QD PO
     Route: 048
  2. AVELOX [Suspect]
     Indication: PNEUMONIA
     Dosage: QD PO
     Route: 048
  3. FLOVENT [Concomitant]
  4. OMEPRAZOLE [Concomitant]

REACTIONS (2)
  - ARTHRALGIA [None]
  - LARYNGITIS [None]
